FAERS Safety Report 12202157 (Version 2)
Quarter: 2016Q2

REPORT INFORMATION
  Report Type: Spontaneous
  Country: ES (occurrence: ES)
  Receive Date: 20160322
  Receipt Date: 20160617
  Transmission Date: 20160815
  Serious: Yes (Other)
  Sender: FDA-Public Use
  Company Number: ES-CORDEN PHARMA LATINA S.P.A.-ES-2016COR000071

PATIENT
  Age: 17 Year
  Sex: Female

DRUGS (6)
  1. MELPHALAN [Suspect]
     Active Substance: MELPHALAN
     Indication: EWING^S SARCOMA
     Dosage: UNK
  2. BUSULFAN. [Suspect]
     Active Substance: BUSULFAN
     Indication: EWING^S SARCOMA
     Dosage: UNK
  3. VINCRISTINE [Suspect]
     Active Substance: VINCRISTINE
     Indication: EWING^S SARCOMA
     Dosage: UNK
  4. IFOSFAMIDE. [Suspect]
     Active Substance: IFOSFAMIDE
     Indication: EWING^S SARCOMA
     Dosage: UNK
  5. ETOPOSIDE. [Suspect]
     Active Substance: ETOPOSIDE
     Indication: EWING^S SARCOMA
     Dosage: UNK
  6. ADRIAMYCIN [Suspect]
     Active Substance: DOXORUBICIN HYDROCHLORIDE
     Indication: EWING^S SARCOMA
     Dosage: UNK

REACTIONS (4)
  - Decreased appetite [Recovered/Resolved]
  - Ecchymosis [Recovered/Resolved]
  - Asthenia [Recovered/Resolved]
  - Acute myeloid leukaemia [Recovered/Resolved]
